FAERS Safety Report 19148588 (Version 1)
Quarter: 2021Q2

REPORT INFORMATION
  Report Type: Spontaneous
  Country: US (occurrence: FR)
  Receive Date: 20210416
  Receipt Date: 20210416
  Transmission Date: 20210717
  Serious: Yes (Hospitalization)
  Sender: FDA-Public Use
  Company Number: FR-ELI_LILLY_AND_COMPANY-FR202104004941

PATIENT
  Age: 75 Year
  Sex: Female
  Weight: 46 kg

DRUGS (10)
  1. SERESTA [Concomitant]
     Active Substance: OXAZEPAM
  2. HUMALOG MIX50/50 [Suspect]
     Active Substance: INSULIN LISPRO
     Indication: DIABETES MELLITUS
     Dosage: 22 INTERNATIONAL UNIT, DAILY
     Route: 058
     Dates: start: 20170419, end: 20170424
  3. LANSOYL [Concomitant]
     Active Substance: MINERAL OIL
  4. AMLOR [Concomitant]
     Active Substance: AMLODIPINE BESYLATE
  5. KARDEGIC [Concomitant]
     Active Substance: ASPIRIN DL-LYSINE
  6. LASILIX [FUROSEMIDE] [Concomitant]
     Active Substance: FUROSEMIDE
  7. ARANESP [Concomitant]
     Active Substance: DARBEPOETIN ALFA
  8. VITAMIN D3 [Concomitant]
     Active Substance: CHOLECALCIFEROL
  9. LEVEMIR [Suspect]
     Active Substance: INSULIN DETEMIR
     Indication: DIABETES MELLITUS
     Dosage: 8 INTERNATIONAL UNIT, DAILY
     Route: 058
  10. CARVEDILOL. [Concomitant]
     Active Substance: CARVEDILOL

REACTIONS (2)
  - Hypoglycaemia [Recovered/Resolved]
  - Malaise [Recovered/Resolved]

NARRATIVE: CASE EVENT DATE: 20170423
